FAERS Safety Report 5334322-7 (Version None)
Quarter: 2007Q2

REPORT INFORMATION
  Report Type: 
  Country: None (occurrence: None)
  Receive Date: 20070525
  Receipt Date: 20070514
  Transmission Date: 20071010
  Serious: Yes (Life-Threatening, Hospitalization)
  Sender: FDA-Public Use
  Company Number: US-KINGPHARMUSA00001-K200700590

PATIENT

DRUGS (8)
  1. ALTACE [Interacting]
     Indication: MYOCARDIAL INFARCTION
     Dosage: 2.5 MG, QD
     Route: 048
     Dates: start: 20070228, end: 20070426
  2. LASIX [Interacting]
     Indication: MYOCARDIAL INFARCTION
     Dosage: 25 MG, QD
     Route: 048
     Dates: start: 20070228, end: 20070426
  3. LUVION /00252501/ [Interacting]
     Indication: MYOCARDIAL INFARCTION
     Dosage: 50 MG, QOD
     Route: 048
     Dates: start: 20070201, end: 20070426
  4. LANOXIN [Suspect]
     Indication: MYOCARDIAL ISCHAEMIA
     Dosage: .12 MG, QD
     Route: 048
     Dates: start: 20070228, end: 20070426
  5. DELTACORTENE [Concomitant]
     Indication: MYOCARDIAL ISCHAEMIA
     Dosage: 12.5 MG, QD
     Route: 048
     Dates: start: 20070228, end: 20070426
  6. ANTRA /00661201/ [Concomitant]
     Indication: HYPERCHLORHYDRIA
     Dosage: 20 MG, UNK
     Route: 048
     Dates: start: 20070228, end: 20070426
  7. INDOBUFEN [Concomitant]
     Indication: MYOCARDIAL ISCHAEMIA
     Dosage: 400 MG, QD
     Route: 048
     Dates: start: 20070228, end: 20070426
  8. CONGESCOR [Concomitant]
     Indication: MYOCARDIAL ISCHAEMIA
     Dosage: 1.25 MG, UNK
     Route: 048
     Dates: start: 20070228, end: 20070426

REACTIONS (5)
  - BRADYCARDIA [None]
  - DRUG INTERACTION [None]
  - HYPOVOLAEMIC SHOCK [None]
  - RENAL FAILURE ACUTE [None]
  - THERAPEUTIC AGENT TOXICITY [None]
